FAERS Safety Report 7793428-3 (Version None)
Quarter: 2011Q4

REPORT INFORMATION
  Report Type: 
  Country: None (occurrence: None)
  Receive Date: 20111003
  Receipt Date: 20110923
  Transmission Date: 20120403
  Serious: Yes (Hospitalization)
  Sender: FDA-Public Use
  Company Number: GXKR2007GB06816

PATIENT
  Age: 55 Year
  Sex: Female

DRUGS (4)
  1. IMIPRAMINE [Suspect]
     Dosage: 25 MG, QD
     Dates: start: 20060509, end: 20060707
  2. LEVOTHYROXINE SODIUM [Concomitant]
     Dates: start: 20050901
  3. CITALOPRAM HYDROBROMIDE [Suspect]
     Indication: DEPRESSION
     Dosage: 20 MG, QD
     Route: 048
     Dates: start: 20050701
  4. IMIPRAMINE [Suspect]
     Indication: DEPRESSION
     Dosage: UNK
     Dates: end: 20050701

REACTIONS (4)
  - ANGLE CLOSURE GLAUCOMA [None]
  - PUPILLARY LIGHT REFLEX TESTS ABNORMAL [None]
  - VISION BLURRED [None]
  - INTRAOCULAR PRESSURE INCREASED [None]
